FAERS Safety Report 7844255-X (Version None)
Quarter: 2011Q4

REPORT INFORMATION
  Report Type: 
  Country: None (occurrence: None)
  Receive Date: 20111025
  Receipt Date: 20111012
  Transmission Date: 20120403
  Serious: Yes (Hospitalization)
  Sender: FDA-Public Use
  Company Number: US-ELI_LILLY_AND_COMPANY-US201105004859

PATIENT
  Sex: Female

DRUGS (1)
  1. FORTEO [Suspect]
     Indication: OSTEOPOROSIS
     Dosage: 20 UG, QD
     Dates: start: 20110703

REACTIONS (5)
  - VAGINAL OPERATION [None]
  - INJECTION SITE PAIN [None]
  - MUSCLE SPASMS [None]
  - BLADDER NECK SUSPENSION [None]
  - PAIN IN EXTREMITY [None]
